FAERS Safety Report 5160181-1 (Version None)
Quarter: 2006Q4

REPORT INFORMATION
  Report Type: 
  Country: None (occurrence: None)
  Receive Date: 20061129
  Receipt Date: 20061116
  Transmission Date: 20070319
  Serious: Yes (Other)
  Sender: FDA-Public Use
  Company Number: CA-JNJFOC-20061104483

PATIENT
  Sex: Male

DRUGS (4)
  1. REMICADE [Suspect]
     Route: 042
  2. REMICADE [Suspect]
     Route: 042
  3. REMICADE [Suspect]
     Indication: CROHN'S DISEASE
     Route: 042
  4. SOLU-CORTEF [Concomitant]
     Indication: PREMEDICATION

REACTIONS (8)
  - DIZZINESS [None]
  - EYE SWELLING [None]
  - INFUSION RELATED REACTION [None]
  - NAUSEA [None]
  - OBSTRUCTIVE AIRWAYS DISORDER [None]
  - PHARYNGOLARYNGEAL PAIN [None]
  - TRISMUS [None]
  - TYPE IV HYPERSENSITIVITY REACTION [None]
